FAERS Safety Report 23362434 (Version 1)
Quarter: 2024Q1

REPORT INFORMATION
  Report Type: Spontaneous
  Country: US (occurrence: US)
  Receive Date: 20240103
  Receipt Date: 20240103
  Transmission Date: 20240410
  Serious: No
  Sender: FDA-Public Use
  Company Number: US-SANOFI-01884419

PATIENT
  Age: 8 Year

DRUGS (1)
  1. CEREZYME [Suspect]
     Active Substance: IMIGLUCERASE
     Dosage: 1600 MG, QOW
     Route: 042
     Dates: start: 201807

REACTIONS (1)
  - Illness [Unknown]
